FAERS Safety Report 10351345 (Version 1)
Quarter: 2014Q3

REPORT INFORMATION
  Report Type: Spontaneous
  Country: CH (occurrence: CH)
  Receive Date: 20140730
  Receipt Date: 20140730
  Transmission Date: 20150326
  Serious: Yes (Other)
  Sender: FDA-Public Use
  Company Number: CH-TEVA-496255ISR

PATIENT
  Age: 84 Year
  Sex: Female
  Weight: 43 kg

DRUGS (4)
  1. PANTOPRAZOLE [Suspect]
     Active Substance: PANTOPRAZOLE SODIUM
     Dosage: 20 MILLIGRAM DAILY;
     Route: 065
     Dates: start: 201407
  2. PANTOPRAZOLE [Suspect]
     Active Substance: PANTOPRAZOLE SODIUM
     Dosage: 40 MILLIGRAM DAILY;
     Dates: start: 201209, end: 201407
  3. KENACORT [Concomitant]
     Active Substance: TRIAMCINOLONE
     Indication: ASTHMA
  4. KENACORT [Concomitant]
     Active Substance: TRIAMCINOLONE
     Indication: BACK PAIN
     Route: 065

REACTIONS (2)
  - Decreased appetite [Unknown]
  - Weight decreased [Unknown]

NARRATIVE: CASE EVENT DATE: 201312
